FAERS Safety Report 14013309 (Version 1)
Quarter: 2017Q3

REPORT INFORMATION
  Report Type: Spontaneous
  Country: FR (occurrence: FR)
  Receive Date: 20170926
  Receipt Date: 20170926
  Transmission Date: 20171128
  Serious: Yes (Other)
  Sender: FDA-Public Use
  Company Number: FR-MERCK KGAA-2027797

PATIENT
  Age: 39 Year
  Sex: Male

DRUGS (6)
  1. NOVOTHYROX [Suspect]
     Active Substance: LEVOTHYROXINE SODIUM
     Indication: THYROIDECTOMY
     Route: 048
     Dates: start: 20041222
  2. LEDERFOLINE [Concomitant]
     Active Substance: LEUCOVORIN CALCIUM
  3. IDEOS (LEKOVIT CA) [Concomitant]
  4. VITAMIN B12 [Concomitant]
     Active Substance: CYANOCOBALAMIN
  5. CYNOMEL [Concomitant]
     Active Substance: LIOTHYRONINE SODIUM
     Dates: start: 2006
  6. LYSANXIA [Concomitant]
     Active Substance: PRAZEPAM

REACTIONS (11)
  - Alopecia [Not Recovered/Not Resolved]
  - Headache [Not Recovered/Not Resolved]
  - Nausea [Not Recovered/Not Resolved]
  - Immune system disorder [Not Recovered/Not Resolved]
  - Irritability [Not Recovered/Not Resolved]
  - Hypersensitivity [Not Recovered/Not Resolved]
  - Appetite disorder [Not Recovered/Not Resolved]
  - Vertigo [Not Recovered/Not Resolved]
  - Asthenia [Not Recovered/Not Resolved]
  - Loss of libido [Not Recovered/Not Resolved]
  - Sleep disorder [Not Recovered/Not Resolved]

NARRATIVE: CASE EVENT DATE: 201704
